FAERS Safety Report 8686743 (Version 2)
Quarter: 2012Q4

REPORT INFORMATION
  Report Type: 
  Country: US (occurrence: US)
  Receive Date: 20120727
  Receipt Date: 20121004
  Transmission Date: 20130627
  Serious: No
  Sender: FDA-Public Use
  Company Number: US-BIOGENIDEC-2012BI026158

PATIENT
  Age: 73 Year
  Sex: Male

DRUGS (3)
  1. AVONEX [Suspect]
     Indication: MULTIPLE SCLEROSIS
     Route: 030
     Dates: start: 20120630
  2. AMPYRA [Concomitant]
     Indication: PRODUCT USED FOR UNKNOWN INDICATION
     Dates: start: 2011, end: 201207
  3. GAMMAGLOBULIN [Concomitant]
     Indication: MULTIPLE SCLEROSIS
     Route: 042
     Dates: start: 2011

REACTIONS (5)
  - Abdominal discomfort [Unknown]
  - Headache [Recovered/Resolved]
  - Fatigue [Unknown]
  - Injection site pain [Unknown]
  - Nausea [Recovered/Resolved]
